FAERS Safety Report 4390444-9 (Version None)
Quarter: 2004Q2

REPORT INFORMATION
  Report Type: 
  Country: None (occurrence: None)
  Receive Date: 20040630
  Receipt Date: 20040614
  Transmission Date: 20050107
  Serious: Yes (Hospitalization)
  Sender: FDA-Public Use
  Company Number: 6009245

PATIENT
  Age: 68 Year
  Sex: Male

DRUGS (9)
  1. DETENSIEL (10 MG, TABLETS) (BISOPROLOL) [Suspect]
     Dosage: 0,500 MG(0,5 MG, 1 IN 1 D); ORAL
     Route: 048
     Dates: start: 20040401, end: 20040412
  2. RAMIPRIL [Suspect]
     Dosage: 1,2500 MG(1,25 MG , 1 IN 1 D), ORAL
     Route: 048
     Dates: start: 20040401, end: 20040412
  3. AMLODIPINE BESYLATE [Suspect]
     Dates: start: 20040401, end: 20040412
  4. CORDARONE [Suspect]
  5. CALCIPARINE [Concomitant]
  6. OMEPRAZOLE [Concomitant]
  7. XANAX [Concomitant]
  8. ISOSORBIDE MONONITRATE [Concomitant]
  9. VASTEIN (PRAVASTATIN SODIUM) [Concomitant]

REACTIONS (7)
  - CHOLESTASIS [None]
  - FLANK PAIN [None]
  - HEPATITIS [None]
  - HEPATITIS VIRAL [None]
  - INFECTION [None]
  - LIVER DISORDER [None]
  - STAPHYLOCOCCAL INFECTION [None]
